FAERS Safety Report 20628640 (Version 1)
Quarter: 2022Q1

REPORT INFORMATION
  Report Type: Spontaneous
  Country: FR (occurrence: FR)
  Receive Date: 20220323
  Receipt Date: 20220323
  Transmission Date: 20220423
  Serious: Yes (Congenital Anomaly, Other)
  Sender: FDA-Public Use
  Company Number: FR-ABBVIE-22K-056-4325643-00

PATIENT
  Sex: Female

DRUGS (1)
  1. VALPROATE SODIUM [Suspect]
     Active Substance: VALPROATE SODIUM
     Indication: Maternal exposure timing unspecified
     Route: 064

REACTIONS (13)
  - Autism spectrum disorder [Unknown]
  - Ear malformation [Unknown]
  - Premature baby [Unknown]
  - Dependent personality disorder [Unknown]
  - Educational problem [Unknown]
  - Balance disorder [Unknown]
  - Compulsions [Unknown]
  - Autonomic nervous system imbalance [Unknown]
  - Reduced facial expression [Unknown]
  - Eye disorder [Unknown]
  - Retained deciduous tooth [Unknown]
  - Behaviour disorder [Unknown]
  - Foetal exposure during pregnancy [Unknown]
